FAERS Safety Report 17405985 (Version 1)
Quarter: 2020Q1

REPORT INFORMATION
  Report Type: Spontaneous
  Country: PE (occurrence: PE)
  Receive Date: 20200127
  Receipt Date: 20200127
  Transmission Date: 20200409
  Serious: Yes (Hospitalization)
  Sender: FDA-Public Use
  Company Number: None

PATIENT
  Sex: Female

DRUGS (1)
  1. TERBINAFINA [Suspect]
     Active Substance: TERBINAFINE
     Dosage: ?          QUANTITY:20 DF DOSAGE FORM;?
     Route: 048

REACTIONS (4)
  - Rash [None]
  - Pruritus [None]
  - Urticaria [None]
  - Erythema [None]

NARRATIVE: CASE EVENT DATE: 20200116
